FAERS Safety Report 19279047 (Version 1)
Quarter: 2021Q2

REPORT INFORMATION
  Report Type: Spontaneous
  Country: TR (occurrence: TR)
  Receive Date: 20210520
  Receipt Date: 20210520
  Transmission Date: 20210717
  Serious: Yes (Other)
  Sender: FDA-Public Use
  Company Number: TR-LUPIN PHARMACEUTICALS INC.-2021-07278

PATIENT
  Sex: Female

DRUGS (6)
  1. HALOPERIDOL. [Suspect]
     Active Substance: HALOPERIDOL
     Indication: MANIA
     Dosage: 5 MILLIGRAM (AMPOULE 2 X 2 INJECTION)
     Route: 065
  2. VALPROATE [Suspect]
     Active Substance: VALPROIC ACID
     Indication: AFFECTIVE DISORDER
     Dosage: 1000 MILLIGRAM, QD
     Route: 065
  3. BIPERIDEN [Concomitant]
     Active Substance: BIPERIDEN
     Indication: PSYCHOTIC SYMPTOM
     Dosage: 4 MILLIGRAM, QD (DISCONTINUED AND RE?STARTED)
     Route: 065
  4. QUETIAPINE FUMARATE. [Suspect]
     Active Substance: QUETIAPINE FUMARATE
     Indication: AFFECTIVE DISORDER
     Dosage: 300 MILLIGRAM, QD
     Route: 065
  5. HALOPERIDOL. [Suspect]
     Active Substance: HALOPERIDOL
     Indication: PSYCHOTIC SYMPTOM
  6. BIPERIDEN [Concomitant]
     Active Substance: BIPERIDEN
     Indication: MANIA
     Dosage: 5 MILLIGRAM (AMPOULE 2 X 1)
     Route: 065

REACTIONS (1)
  - Drug ineffective [Unknown]
